FAERS Safety Report 8037532-3 (Version None)
Quarter: 2012Q1

REPORT INFORMATION
  Report Type: 
  Country: None (occurrence: None)
  Receive Date: 20120111
  Receipt Date: 20120110
  Transmission Date: 20120608
  Serious: Yes (Other)
  Sender: FDA-Public Use
  Company Number: US-ROCHE-794424

PATIENT
  Sex: Female
  Weight: 74.002 kg

DRUGS (1)
  1. ACCUTANE [Suspect]
     Indication: ACNE
     Dosage: PLAINTIFF INGESTED FROM APPROXIMATELY LATE 1980S THRU EARLY 1990S
     Route: 065

REACTIONS (5)
  - INFLAMMATORY BOWEL DISEASE [None]
  - HYPERTENSION [None]
  - ANAEMIA [None]
  - IRRITABLE BOWEL SYNDROME [None]
  - BLOOD CHOLESTEROL INCREASED [None]
